FAERS Safety Report 9802173 (Version 5)
Quarter: 2016Q3

REPORT INFORMATION
  Report Type: Report from Study
  Country: CN (occurrence: CN)
  Receive Date: 20140107
  Receipt Date: 20160801
  Transmission Date: 20161109
  Serious: Yes (Death, Hospitalization, Other)
  Sender: FDA-Public Use
  Company Number: PHHY2014CN001232

PATIENT
  Age: 23 Year
  Sex: Male
  Weight: 60 kg

DRUGS (5)
  1. TACROLIMUS. [Suspect]
     Active Substance: TACROLIMUS
     Indication: PROPHYLAXIS AGAINST TRANSPLANT REJECTION
     Dosage: 5 MG, QD
     Route: 048
     Dates: start: 20130514, end: 20131108
  2. MYFORTIC [Suspect]
     Active Substance: MYCOPHENOLATE SODIUM
     Indication: PROPHYLAXIS AGAINST TRANSPLANT REJECTION
     Dosage: 1080 MG, QD
     Route: 048
     Dates: start: 20121218, end: 20131108
  3. MYFORTIC [Suspect]
     Active Substance: MYCOPHENOLATE SODIUM
     Dosage: 1080 MG, QD
     Route: 048
     Dates: start: 20130101
  4. PREDNISONE. [Concomitant]
     Active Substance: PREDNISONE
     Indication: PROPHYLAXIS AGAINST TRANSPLANT REJECTION
     Dosage: 5 MG, QD
     Route: 048
     Dates: start: 20121218, end: 20131108
  5. METHYLPREDNISOLONE. [Concomitant]
     Active Substance: METHYLPREDNISOLONE
     Indication: PROPHYLAXIS AGAINST TRANSPLANT REJECTION
     Dosage: 40 MG, QD
     Route: 065
     Dates: start: 20130505

REACTIONS (9)
  - Pulmonary mycosis [Unknown]
  - Pneumonia [Unknown]
  - Septic shock [Fatal]
  - Condition aggravated [Unknown]
  - Complications of transplanted kidney [Unknown]
  - Varicella [Unknown]
  - Hepatic function abnormal [Unknown]
  - Lung infection [Fatal]
  - Respiratory failure [Unknown]

NARRATIVE: CASE EVENT DATE: 20130514
